FAERS Safety Report 21044925 (Version 2)
Quarter: 2022Q3

REPORT INFORMATION
  Report Type: Report from Study
  Country: DE (occurrence: DE)
  Receive Date: 20220705
  Receipt Date: 20220715
  Transmission Date: 20221027
  Serious: Yes (Life-Threatening, Hospitalization, Other)
  Sender: FDA-Public Use
  Company Number: DE-BRISTOL-MYERS SQUIBB COMPANY-2022-068776

PATIENT
  Age: 49 Year
  Sex: Male

DRUGS (14)
  1. NIVOLUMAB [Suspect]
     Active Substance: NIVOLUMAB
     Indication: Glioblastoma
     Route: 058
     Dates: start: 20220301
  2. INVESTIGATIONAL PRODUCT [Suspect]
     Active Substance: INVESTIGATIONAL PRODUCT
     Indication: Glioblastoma
     Dosage: S
     Route: 042
     Dates: start: 20220201
  3. FEBUXOSTAT [Concomitant]
     Active Substance: FEBUXOSTAT
     Dates: start: 20200813
  4. LACOSAMIDE [Concomitant]
     Active Substance: LACOSAMIDE
     Dates: start: 20201119
  5. ATORVASTATIN\EZETIMIBE [Concomitant]
     Active Substance: ATORVASTATIN\EZETIMIBE
     Indication: Hyperlipidaemia
     Dosage: 1 DOSAGE FORM EVERY 1DAY(S) EZETIMIBE 10 MG,ATORVASTATIN 20 MG
     Route: 048
     Dates: start: 201206
  6. NOVALGIN (METAMIZOLE SODIUM) [Concomitant]
     Active Substance: METAMIZOLE SODIUM
     Indication: Headache
     Route: 048
     Dates: start: 20200309
  7. NOVALGIN (METAMIZOLE SODIUM) [Concomitant]
     Active Substance: METAMIZOLE SODIUM
     Indication: Brain oedema
  8. MOMETASONE FUROATE [Concomitant]
     Active Substance: MOMETASONE FUROATE
     Indication: Eczema
     Dosage: 1 OR 2 APPLICATION FOR WEEK
     Route: 061
  9. DIMETHINDENE MALEATE [Concomitant]
     Active Substance: DIMETHINDENE MALEATE
     Indication: Rash
     Route: 048
     Dates: start: 20220426
  10. HISTAKUT DIMETINDMALEATE [Concomitant]
     Indication: Prophylaxis
     Route: 042
     Dates: start: 20220504
  11. BETAMETHASONE [Concomitant]
     Active Substance: BETAMETHASONE
     Indication: Rash
     Route: 061
     Dates: start: 20220424
  12. CLOBAZAM [Concomitant]
     Active Substance: CLOBAZAM
     Indication: Seizure
     Dosage: 5MG EVERY 0.5DAYS
     Route: 048
     Dates: start: 20220416
  13. PANTOPRAZOLE [Concomitant]
     Active Substance: PANTOPRAZOLE
     Route: 048
     Dates: start: 20220329
  14. METAMIZOLE [Concomitant]
     Active Substance: METAMIZOLE
     Indication: Pain
     Route: 048
     Dates: start: 20220409

REACTIONS (1)
  - Meningitis aseptic [Recovered/Resolved with Sequelae]

NARRATIVE: CASE EVENT DATE: 20220627
